FAERS Safety Report 9160952 (Version 1)
Quarter: 2013Q1

REPORT INFORMATION
  Report Type: Spontaneous
  Country: BE (occurrence: BE)
  Receive Date: 20130313
  Receipt Date: 20130313
  Transmission Date: 20140127
  Serious: Yes (Hospitalization, Other)
  Sender: FDA-Public Use
  Company Number: BE-B.I. PHARMACEUTICALS,INC./RIDGEFIELD-2013-BL-00126BL

PATIENT
  Sex: Female

DRUGS (11)
  1. PRADAXA [Suspect]
     Indication: ATRIAL FIBRILLATION
     Dosage: 220 MG
     Dates: start: 20121231, end: 20130218
  2. DOLZAM [Concomitant]
     Indication: PAIN
  3. DAFALGAN [Concomitant]
     Indication: PAIN
  4. LANITOP [Concomitant]
     Indication: ATRIAL FIBRILLATION
  5. LASIX [Concomitant]
  6. OMEPRAZOLE [Concomitant]
  7. PROLOPA [Concomitant]
  8. REQUIP [Concomitant]
  9. NOBITEN [Concomitant]
  10. LIPITOR [Concomitant]
  11. LYSOMUCIL [Concomitant]

REACTIONS (2)
  - Abdominal wall haematoma [Not Recovered/Not Resolved]
  - Neoplasm malignant [Unknown]
